FAERS Safety Report 10150308 (Version 1)
Quarter: 2014Q2

REPORT INFORMATION
  Report Type: Spontaneous
  Country: GB (occurrence: GB)
  Receive Date: 20140502
  Receipt Date: 20140502
  Transmission Date: 20141212
  Serious: Yes (Hospitalization)
  Sender: FDA-Public Use
  Company Number: GB-WATSON-2014-08728

PATIENT
  Sex: Male
  Weight: 129 kg

DRUGS (3)
  1. METFORMIN (UNKNOWN) [Suspect]
     Indication: TYPE 2 DIABETES MELLITUS
     Dosage: 2 G, UNKNOWN
     Route: 065
  2. VICTOZA [Suspect]
     Indication: TYPE 2 DIABETES MELLITUS
     Dosage: 1.2 MG, DAILY
     Route: 065
     Dates: start: 201203, end: 20140328
  3. VICTOZA [Suspect]
     Dosage: 0.6 MG, DAILY
     Route: 065
     Dates: start: 20120303, end: 201203

REACTIONS (5)
  - Pneumonia [Unknown]
  - Cardiac disorder [Unknown]
  - Alanine aminotransferase increased [Unknown]
  - Hypoglycaemia [Unknown]
  - Blood glucose increased [Unknown]
